FAERS Safety Report 6558224 (Version 1)
Quarter: 2020Q3

REPORT INFORMATION
  Report Type: Report from Study
  Country: JP (occurrence: JP)
  Receive Date: 20080221
  Receipt Date: 20080221
  Transmission Date: 20201104
  Serious: Yes (Hospitalization)
  Sender: FDA-Public Use
  Company Number: JP-ROCHE-545189

PATIENT
  Age: 70 Year
  Sex: Female

DRUGS (13)
  1. TRANEXAMIC ACID. [Concomitant]
     Active Substance: TRANEXAMIC ACID
  2. IBANDRONIC ACID. [Suspect]
     Active Substance: IBANDRONIC ACID
     Indication: OSTEOPOROSIS
     Dosage: DOSAGE FORM REPORTED AS : INFUSION.
     Route: 042
     Dates: start: 20070426, end: 20071220
  3. DEXTROMETHORPHAN HYDROBROMIDE. [Concomitant]
     Active Substance: DEXTROMETHORPHAN HYDROBROMIDE
     Dosage: DRUG REPORTED AS DEXTROMETHORPHAN HYDROBROMIDE HYDRATE
     Dates: start: 20071127
  4. HYDROCHLOROTHIAZIDE. [Concomitant]
     Active Substance: HYDROCHLOROTHIAZIDE
  5. UNSPECIFIED INGREDIENT [Concomitant]
     Active Substance: UNSPECIFIED INGREDIENT
     Dosage: DRUG REPORTED AS CHINESE HERBAL MEDICINE
  6. FLURBIPROFEN. [Concomitant]
     Active Substance: FLURBIPROFEN
  7. CALCIUM [Concomitant]
     Active Substance: CALCIUM
  8. FUDOSTEINE [Concomitant]
     Active Substance: FUDOSTEINE
  9. CLARITHROMYCIN. [Concomitant]
     Active Substance: CLARITHROMYCIN
  10. UNSPECIFIED INGREDIENT [Concomitant]
     Active Substance: UNSPECIFIED INGREDIENT
  11. RISEDRONIC ACID [Suspect]
     Active Substance: RISEDRONIC ACID
     Indication: OSTEOPOROSIS
     Dosage: STRENGTH PER PROTOCOL. FREQUENCY REPORTED AS : EVERY DAY.
     Route: 048
     Dates: start: 20070426, end: 20071220
  12. CARBAZOCHROME [Concomitant]
     Active Substance: CARBAZOCHROME
     Dosage: DRUG REPORTED AS CARBAZOCHROME SODIUM SALFONATE HYDRATE
  13. METHYL SALICYLATE [Concomitant]
     Active Substance: METHYL SALICYLATE

REACTIONS (1)
  - Vasculitis [Not Recovered/Not Resolved]

NARRATIVE: CASE EVENT DATE: 20071127
